FAERS Safety Report 16624564 (Version 1)
Quarter: 2019Q3

REPORT INFORMATION
  Report Type: Spontaneous
  Country: US (occurrence: US)
  Receive Date: 20190611
  Receipt Date: 20190611
  Transmission Date: 20191004
  Serious: No
  Sender: FDA-Public Use
  Company Number: None

PATIENT
  Age: 70 Year
  Sex: Male

DRUGS (1)
  1. ERLEADA [Suspect]
     Active Substance: APALUTAMIDE
     Dates: start: 201901

REACTIONS (2)
  - Blood cholesterol increased [None]
  - Low density lipoprotein increased [None]

NARRATIVE: CASE EVENT DATE: 20190611
